FAERS Safety Report 4345783-4 (Version None)
Quarter: 2004Q2

REPORT INFORMATION
  Report Type: 
  Country: None (occurrence: None)
  Receive Date: 20040421
  Receipt Date: 20040408
  Transmission Date: 20050107
  Serious: Yes (Other)
  Sender: FDA-Public Use
  Company Number: DEU-2004-0000803

PATIENT
  Age: 70 Year
  Sex: Male
  Weight: 73 kg

DRUGS (5)
  1. OXYCODONE HCL [Suspect]
     Indication: BACK PAIN
     Dosage: 10 MG, BID, ORAL
     Route: 048
     Dates: start: 20040221, end: 20040224
  2. HYDROCHLOROTHIAZIDE [Suspect]
     Indication: ESSENTIAL HYPERTENSION
     Dosage: ORAL
     Route: 048
     Dates: end: 20040201
  3. LISINOPRIL [Suspect]
     Indication: ESSENTIAL HYPERTENSION
     Dosage: ORAL
     Route: 048
     Dates: end: 20040201
  4. DICLOFENAC SODIUM [Suspect]
     Indication: BACK PAIN
     Dosage: RECTAL
     Route: 054
  5. SYMFONA N (GINKGO BILOBA EXTRACT) [Concomitant]

REACTIONS (6)
  - ABDOMINAL PAIN UPPER [None]
  - DRUG INTERACTION [None]
  - HEADACHE [None]
  - HYPONATRAEMIA [None]
  - MUSCLE CRAMP [None]
  - NAUSEA [None]
